FAERS Safety Report 5698690-9 (Version None)
Quarter: 2008Q2

REPORT INFORMATION
  Report Type: 
  Country: None (occurrence: None)
  Receive Date: 20080408
  Receipt Date: 20070320
  Transmission Date: 20081010
  Serious: No
  Sender: FDA-Public Use
  Company Number: US-BAYER-US-2007-010152

PATIENT
  Sex: Female

DRUGS (2)
  1. MENOSTAR [Suspect]
     Route: 062
  2. MENOSTAR [Suspect]
     Route: 062

REACTIONS (3)
  - ALOPECIA [None]
  - SOMNOLENCE [None]
  - WEIGHT DECREASED [None]
